FAERS Safety Report 7157202-3 (Version None)
Quarter: 2010Q4

REPORT INFORMATION
  Report Type: 
  Country: None (occurrence: None)
  Receive Date: 20101214
  Receipt Date: 20091210
  Transmission Date: 20110411
  Serious: No
  Sender: FDA-Public Use
  Company Number: US-ASTRAZENECA-2009SE31185

PATIENT
  Age: 56 Year
  Sex: Female

DRUGS (6)
  1. CRESTOR [Suspect]
     Route: 048
     Dates: start: 20090801, end: 20091001
  2. CRESTOR [Suspect]
     Route: 048
     Dates: start: 20091001, end: 20091101
  3. NEXIUM [Concomitant]
  4. ZOLOFT [Concomitant]
  5. ZYRTEC [Concomitant]
  6. VICKS NOSE SPRAY [Concomitant]

REACTIONS (2)
  - ARTHRALGIA [None]
  - TRICHORRHEXIS [None]
